FAERS Safety Report 22220778 (Version 4)
Quarter: 2023Q4

REPORT INFORMATION
  Report Type: Report from Study
  Country: US (occurrence: US)
  Receive Date: 20230418
  Receipt Date: 20231005
  Transmission Date: 20240110
  Serious: Yes (Other)
  Sender: FDA-Public Use
  Company Number: US-ABBVIE-4731889

PATIENT
  Age: 95 Year
  Sex: Female

DRUGS (2)
  1. HUMIRA [Suspect]
     Active Substance: ADALIMUMAB
     Indication: Colitis ulcerative
     Route: 058
     Dates: start: 20160708
  2. COUMADIN [Concomitant]
     Active Substance: WARFARIN SODIUM
     Indication: Product used for unknown indication

REACTIONS (23)
  - Sinus disorder [Recovering/Resolving]
  - Arthralgia [Recovering/Resolving]
  - Weight decreased [Recovering/Resolving]
  - Sinusitis [Recovered/Resolved]
  - Scoliosis [Unknown]
  - Eye infection [Unknown]
  - Arthritis [Recovered/Resolved]
  - Renal failure [Unknown]
  - Hypoacusis [Unknown]
  - COVID-19 [Unknown]
  - Hypertension [Unknown]
  - Pneumonia [Unknown]
  - Rash pruritic [Unknown]
  - Spinal stenosis [Unknown]
  - Mobility decreased [Unknown]
  - Inflammatory bowel disease [Recovered/Resolved]
  - Eczema [Unknown]
  - Deep vein thrombosis [Unknown]
  - Proctitis ulcerative [Unknown]
  - Alopecia [Unknown]
  - Dacryostenosis acquired [Recovering/Resolving]
  - Periorbital oedema [Recovering/Resolving]
  - Atrial fibrillation [Unknown]

NARRATIVE: CASE EVENT DATE: 20221001
